FAERS Safety Report 9115783 (Version 1)
Quarter: 2013Q1

REPORT INFORMATION
  Report Type: Spontaneous
  Country: GB (occurrence: GB)
  Receive Date: 20130224
  Receipt Date: 20130224
  Transmission Date: 20140127
  Serious: Yes (Other)
  Sender: FDA-Public Use
  Company Number: PHFR2004GB03788

PATIENT
  Sex: Female

DRUGS (3)
  1. CLOZARIL [Suspect]
     Indication: SCHIZOPHRENIA
     Dosage: UNK UKN, UNK
     Route: 048
     Dates: start: 20031218
  2. CHLORPROMAZINE [Concomitant]
     Dosage: UNK UKN, PRN
     Route: 065
  3. LORAZEPAM [Concomitant]
     Dosage: UNK UKN, UNK
     Route: 065

REACTIONS (3)
  - Bundle branch block right [Unknown]
  - Tachycardia [Not Recovered/Not Resolved]
  - Electrocardiogram change [Unknown]
